FAERS Safety Report 8224357-9 (Version None)
Quarter: 2012Q1

REPORT INFORMATION
  Report Type: 
  Country: None (occurrence: None)
  Receive Date: 20120307
  Receipt Date: 20110624
  Transmission Date: 20120608
  Serious: No
  Sender: FDA-Public Use
  Company Number: PHHY2011US56855

PATIENT
  Sex: Female

DRUGS (4)
  1. CARBATROL [Concomitant]
  2. TEGRETOL [Concomitant]
  3. AFINITOR [Suspect]
     Indication: TUBEROUS SCLEROSIS
     Dosage: 5 MG, DAILY, OTHER
     Route: 050
     Dates: start: 20110523
  4. CALCIVIT D (CALCIUM CARBONATE, COLECALCIFEROL) [Concomitant]

REACTIONS (2)
  - BACK PAIN [None]
  - PRURITUS [None]
